FAERS Safety Report 8062923-4 (Version None)
Quarter: 2012Q1

REPORT INFORMATION
  Report Type: 
  Country: None (occurrence: None)
  Receive Date: 20120123
  Receipt Date: 20120123
  Transmission Date: 20120608
  Serious: Yes (Other)
  Sender: FDA-Public Use
  Company Number: None

PATIENT
  Age: 50 Year
  Sex: Male
  Weight: 141.2 kg

DRUGS (1)
  1. HUMULIN R [Suspect]
     Indication: TYPE 2 DIABETES MELLITUS
     Dosage: 12 UNITS
     Route: 058
     Dates: start: 20120121, end: 20120121

REACTIONS (2)
  - MUSCLE SPASMS [None]
  - INFUSION RELATED REACTION [None]
